FAERS Safety Report 11177339 (Version 1)
Quarter: 2015Q2

REPORT INFORMATION
  Report Type: Spontaneous
  Country: US (occurrence: None)
  Receive Date: 20150515
  Receipt Date: 20150515
  Transmission Date: 20150821
  Serious: Yes (Hospitalization)
  Sender: FDA-Public Use
  Company Number: 118886

PATIENT
  Age: 58 Year
  Sex: Female
  Weight: 57.2 kg

DRUGS (5)
  1. MULTIVITAMINS PLUS IRON (FERROUS SULFATE, VITAMINS NOS) [Concomitant]
  2. CIMZIA [Suspect]
     Active Substance: CERTOLIZUMAB PEGOL
     Indication: CROHN^S DISEASE
     Dosage: 400 MG, EV 4 WEEKS, SUBCUTANEOUS
     Route: 058
     Dates: start: 20131206, end: 201404
  3. ALENDRONATE (ALENDRONATE) [Concomitant]
  4. IMURAN [Concomitant]
     Active Substance: AZATHIOPRINE
  5. B12 (CYANOCOBALAMIN) [Concomitant]

REACTIONS (2)
  - Proctalgia [None]
  - Anorectal infection [None]

NARRATIVE: CASE EVENT DATE: 20131206
